FAERS Safety Report 8127233-5 (Version None)
Quarter: 2012Q1

REPORT INFORMATION
  Report Type: 
  Country: None (occurrence: None)
  Receive Date: 20120210
  Receipt Date: 20120207
  Transmission Date: 20120608
  Serious: Yes (Other)
  Sender: FDA-Public Use
  Company Number: US-PFIZER INC-2012033800

PATIENT
  Sex: Female
  Weight: 74.376 kg

DRUGS (10)
  1. VITAMIN D [Concomitant]
     Indication: VITAMIN D DECREASED
     Dosage: UNK
  2. LIPITOR [Suspect]
     Indication: CARDIAC DISORDER
     Dosage: 40 MG, 1X/DAY
     Route: 048
     Dates: start: 20020101, end: 20110101
  3. COUMADIN [Concomitant]
     Indication: ANTICOAGULANT THERAPY
     Dosage: UNK
  4. ACETYLSALICYLIC ACID [Concomitant]
     Indication: CARDIAC DISORDER
     Dosage: 81 MG, UNK
  5. ACCUPRIL [Concomitant]
     Indication: CARDIAC DISORDER
     Dosage: UNK
  6. COREG [Concomitant]
     Indication: CARDIAC DISORDER
     Dosage: UNK
  7. HYDROCHLOROTHIAZIDE [Concomitant]
     Indication: FLUID RETENTION
     Dosage: UNK
  8. INSULIN [Concomitant]
     Indication: DIABETES MELLITUS
     Dosage: UNK
  9. LIPITOR [Suspect]
     Dosage: 10 MG, 1X/DAY
     Route: 048
     Dates: start: 20110101
  10. LASIX [Concomitant]
     Indication: FLUID RETENTION
     Dosage: UNK

REACTIONS (1)
  - BLOOD THYROID STIMULATING HORMONE DECREASED [None]
